FAERS Safety Report 22311387 (Version 1)
Quarter: 2023Q2

REPORT INFORMATION
  Report Type: Report from Study
  Country: IE (occurrence: None)
  Receive Date: 20230511
  Receipt Date: 20230511
  Transmission Date: 20230722
  Serious: Yes (Hospitalization)
  Sender: FDA-Public Use
  Company Number: 2023A010417

PATIENT
  Age: 14283 Day
  Sex: Female

DRUGS (14)
  1. FASENRA [Suspect]
     Active Substance: BENRALIZUMAB
     Indication: Asthma
     Route: 058
     Dates: start: 2020
  2. FASENRA [Suspect]
     Active Substance: BENRALIZUMAB
     Indication: Asthma
     Route: 058
     Dates: start: 20230309
  3. FASENRA [Suspect]
     Active Substance: BENRALIZUMAB
     Indication: Asthma
     Route: 058
     Dates: start: 20230504
  4. MONTELUKAST [Concomitant]
     Active Substance: MONTELUKAST SODIUM
     Route: 065
  5. AZITHROMYCIN [Concomitant]
     Active Substance: AZITHROMYCIN
     Route: 065
  6. ESOMEPRAZOLE [Concomitant]
     Active Substance: ESOMEPRAZOLE
     Route: 065
  7. GLUCOPHAGE [Concomitant]
     Active Substance: METFORMIN HYDROCHLORIDE
     Route: 065
  8. ALFOREX [Concomitant]
     Route: 065
  9. ESCITALOPRAM [Concomitant]
     Active Substance: ESCITALOPRAM OXALATE
     Route: 065
  10. FLUCONAZOLE [Concomitant]
     Active Substance: FLUCONAZOLE
     Route: 065
  11. CALCIUM [Concomitant]
     Active Substance: CALCIUM
     Route: 065
  12. LIQUID OXYGEN [Concomitant]
     Active Substance: OXYGEN
     Dosage: 2.0L CONTINUOUSLY
     Route: 065
  13. DELTCORTRIL [Concomitant]
     Route: 065
  14. OZEMPIC [Concomitant]
     Active Substance: SEMAGLUTIDE
     Dosage: 1.0MG UNKNOWN
     Route: 065

REACTIONS (2)
  - Asthma [Not Recovered/Not Resolved]
  - Lower respiratory tract infection [Unknown]

NARRATIVE: CASE EVENT DATE: 20230420
